FAERS Safety Report 9355027 (Version 1)
Quarter: 2013Q2

REPORT INFORMATION
  Report Type: Spontaneous
  Country: US (occurrence: US)
  Receive Date: 20130619
  Receipt Date: 20130619
  Transmission Date: 20140414
  Serious: No
  Sender: FDA-Public Use
  Company Number: US-BAYER-2013-073381

PATIENT
  Sex: Female
  Weight: 73 kg

DRUGS (17)
  1. BETASERON [Suspect]
     Dosage: 1 ML, QOD
     Route: 058
  2. CYMBALTA [Concomitant]
     Dosage: 20 MG, UNK
  3. COZAAR [Concomitant]
     Dosage: 25 MG, UNK
  4. LIPITOR [Concomitant]
     Dosage: 10 MG, UNK
  5. VALTREX [Concomitant]
     Dosage: 500 MG, UNK
  6. ALBUTEROL [Concomitant]
     Dosage: 0.5 %, UNK
  7. SYMBICORT [Concomitant]
  8. AMANTADINE [Concomitant]
     Dosage: 100 MG, UNK
  9. BYSTOLIC [Concomitant]
     Dosage: 10 MG, UNK
  10. THYROID [Concomitant]
     Dosage: 120 MG, UNK
  11. VITAMIN D [Concomitant]
     Dosage: 1000 U, UNK
  12. CALCIUM +VIT D [Concomitant]
  13. VITAMIN C [Concomitant]
     Dosage: 500 MG, UNK
  14. STOOL SOFTENER [Concomitant]
  15. COQ10 [Concomitant]
  16. XOPENEX [Concomitant]
     Dosage: 0.31 MG, UNK
  17. VITAMIN E [Concomitant]

REACTIONS (1)
  - Drug ineffective [None]
